FAERS Safety Report 18964789 (Version 1)
Quarter: 2021Q1

REPORT INFORMATION
  Report Type: Spontaneous
  Country: US (occurrence: US)
  Receive Date: 20210303
  Receipt Date: 20210303
  Transmission Date: 20210420
  Serious: No
  Sender: FDA-Public Use
  Company Number: US-AMNEAL PHARMACEUTICALS-2020-AMRX-00941

PATIENT
  Sex: Male
  Weight: 77.1 kg

DRUGS (2)
  1. RYTARY [Suspect]
     Active Substance: CARBIDOPA\LEVODOPA
     Indication: PARKINSON^S DISEASE
     Dosage: 1 CAPSULES, TID
     Route: 048
     Dates: end: 20200320
  2. XANAX [Concomitant]
     Active Substance: ALPRAZOLAM
     Indication: ANXIETY
     Dosage: 1 TABLETS, 2X/DAY, 1 TABLET EVERY MORNING AND AT NIGHT BEEN TAKING FOR 15, AS NEEDED
     Route: 065

REACTIONS (1)
  - Dizziness [Recovered/Resolved]
